FAERS Safety Report 5469846-5 (Version None)
Quarter: 2007Q3

REPORT INFORMATION
  Report Type: 
  Country: None (occurrence: None)
  Receive Date: 20070927
  Receipt Date: 20070814
  Transmission Date: 20080115
  Serious: No
  Sender: FDA-Public Use
  Company Number: US-BRISTOL-MYERS SQUIBB COMPANY-13877626

PATIENT
  Age: 24 Year
  Sex: Female

DRUGS (1)
  1. SPRYCEL [Suspect]
     Indication: LEUKAEMIA
     Dosage: ALTERNATING SCHEDULE OF 1 TABLET PER DAY AND 2 TABLETS PER DAY
     Route: 048

REACTIONS (1)
  - ACCIDENTAL EXPOSURE [None]
